FAERS Safety Report 9524345 (Version 1)
Quarter: 2013Q3

REPORT INFORMATION
  Report Type: Spontaneous
  Country: CL (occurrence: None)
  Receive Date: 20130912
  Receipt Date: 20130912
  Transmission Date: 20140515
  Serious: Yes (Other)
  Sender: FDA-Public Use
  Company Number: SYM-2013-10399

PATIENT
  Age: 25 Year
  Sex: Female

DRUGS (3)
  1. WELLBUTRIN XL [Suspect]
     Indication: DEPRESSION
     Dosage: 1 IN 1 D
     Route: 048
     Dates: start: 20130715
  2. SERTRALINE (SERTRALINE) (SERTRALINE) [Concomitant]
  3. SEROQUEL (QUETIAPINE FUMARATE) (QUETIAPINE FUMARATE) [Concomitant]

REACTIONS (5)
  - Convulsion [None]
  - Loss of consciousness [None]
  - Incontinence [None]
  - Amnesia [None]
  - Grand mal convulsion [None]
